FAERS Safety Report 12475992 (Version 1)
Quarter: 2016Q2

REPORT INFORMATION
  Report Type: Spontaneous
  Country: JP (occurrence: JP)
  Receive Date: 20160617
  Receipt Date: 20160617
  Transmission Date: 20160815
  Serious: Yes (Other)
  Sender: FDA-Public Use
  Company Number: JP-PFIZER INC-2016281981

PATIENT
  Age: 8 Decade
  Sex: Female

DRUGS (1)
  1. SUTENT [Suspect]
     Active Substance: SUNITINIB MALATE
     Dosage: 2-WEEKS ON / 1-WEEK OFF SCHEDULE
     Route: 048

REACTIONS (1)
  - Gastroenteritis [Unknown]
